FAERS Safety Report 13539718 (Version 1)
Quarter: 2017Q2

REPORT INFORMATION
  Report Type: Spontaneous
  Country: US (occurrence: US)
  Receive Date: 20170512
  Receipt Date: 20170512
  Transmission Date: 20170830
  Serious: No
  Sender: FDA-Public Use
  Company Number: US-JNJFOC-20170319958

PATIENT
  Age: 3 Decade
  Sex: Male
  Weight: 113.4 kg

DRUGS (1)
  1. INVEGA SUSTENNA [Suspect]
     Active Substance: PALIPERIDONE PALMITATE
     Indication: BIPOLAR I DISORDER
     Route: 030

REACTIONS (9)
  - Off label use [Unknown]
  - Product use in unapproved indication [Unknown]
  - Weight fluctuation [Unknown]
  - Treatment noncompliance [Unknown]
  - Anxiety [Unknown]
  - Pressure of speech [Unknown]
  - Logorrhoea [Unknown]
  - Blood prolactin increased [Unknown]
  - Mania [Unknown]
